FAERS Safety Report 13616990 (Version 1)
Quarter: 2017Q2

REPORT INFORMATION
  Report Type: Spontaneous
  Country: US (occurrence: US)
  Receive Date: 20170606
  Receipt Date: 20170606
  Transmission Date: 20170830
  Serious: No
  Sender: FDA-Public Use
  Company Number: US-SA-2016SA140735

PATIENT
  Age: 70 Year
  Sex: Female
  Weight: 121.1 kg

DRUGS (26)
  1. LANTUS SOLOSTAR [Suspect]
     Active Substance: INSULIN GLARGINE
     Indication: TYPE 2 DIABETES MELLITUS
     Dosage: DOSE:72 UNIT(S)
     Route: 058
     Dates: start: 2009, end: 20160731
  2. PRILOSEC [Concomitant]
     Active Substance: OMEPRAZOLE MAGNESIUM
  3. LOSARTAN. [Concomitant]
     Active Substance: LOSARTAN
  4. SIMVASTATIN. [Concomitant]
     Active Substance: SIMVASTATIN
  5. CALCIUM [Concomitant]
     Active Substance: CALCIUM
  6. FISH OIL [Concomitant]
     Active Substance: FISH OIL
  7. LANTUS SOLOSTAR [Suspect]
     Active Substance: INSULIN GLARGINE
     Indication: TYPE 2 DIABETES MELLITUS
     Dosage: DOSE:72 UNIT(S)
     Route: 058
     Dates: start: 2009, end: 20160731
  8. SOLOSTAR [Suspect]
     Active Substance: DEVICE
     Indication: TYPE 2 DIABETES MELLITUS
     Dates: start: 2009, end: 20160731
  9. SOLOSTAR [Suspect]
     Active Substance: DEVICE
     Indication: TYPE 2 DIABETES MELLITUS
     Dates: start: 2009, end: 20160731
  10. HUMALOG [Concomitant]
     Active Substance: INSULIN LISPRO
  11. BUPROPION. [Concomitant]
     Active Substance: BUPROPION
  12. GABAPENTIN. [Concomitant]
     Active Substance: GABAPENTIN
  13. PANTHENOL/RETINOL/THIAMINE HYDROCHLORIDE/ASCORBIC ACID/ERGOCALCIFEROL/FOLIC ACID/RIBOFLAVIN/NICOTINA [Concomitant]
  14. CALCITRIOL. [Concomitant]
     Active Substance: CALCITRIOL
  15. ASPIRIN. [Concomitant]
     Active Substance: ASPIRIN
     Dosage: 81MG
  16. LANTUS SOLOSTAR [Suspect]
     Active Substance: INSULIN GLARGINE
     Indication: TYPE 2 DIABETES MELLITUS
     Dosage: DOSE:72 UNIT(S)
     Route: 058
     Dates: start: 2009, end: 20160731
  17. OXYCODONE [Concomitant]
     Active Substance: OXYCODONE
  18. ACETAMINOPHEN. [Concomitant]
     Active Substance: ACETAMINOPHEN
  19. TOUJEO [Concomitant]
     Active Substance: INSULIN GLARGINE
  20. HYDRALAZINE [Concomitant]
     Active Substance: HYDRALAZINE HYDROCHLORIDE
  21. TORSEMIDE. [Concomitant]
     Active Substance: TORSEMIDE
  22. COENZYME Q10 [Concomitant]
     Active Substance: UBIDECARENONE
  23. SOLOSTAR [Suspect]
     Active Substance: DEVICE
     Indication: TYPE 2 DIABETES MELLITUS
     Dates: start: 2009, end: 20160731
  24. XANAX [Concomitant]
     Active Substance: ALPRAZOLAM
  25. SOLOSTAR [Concomitant]
     Active Substance: DEVICE
  26. SPIRONOLACTONE. [Concomitant]
     Active Substance: SPIRONOLACTONE

REACTIONS (7)
  - Nerve compression [Unknown]
  - Intervertebral disc degeneration [Unknown]
  - Pain [Unknown]
  - Blood glucose increased [Unknown]
  - Device issue [Unknown]
  - Product use issue [Unknown]
  - Sciatica [Unknown]
